FAERS Safety Report 13078937 (Version 3)
Quarter: 2017Q1

REPORT INFORMATION
  Report Type: Spontaneous
  Country: US (occurrence: US)
  Receive Date: 20170102
  Receipt Date: 20170307
  Transmission Date: 20170428
  Serious: No
  Sender: FDA-Public Use
  Company Number: US-009507513-1612USA007384

PATIENT
  Age: 21 Year
  Sex: Female
  Weight: 82.36 kg

DRUGS (3)
  1. NEXPLANON [Suspect]
     Active Substance: ETONOGESTREL
     Dosage: EVERY 3 YEARS, RIGHT ARM
     Dates: start: 20161213, end: 20161213
  2. NEXPLANON [Suspect]
     Active Substance: ETONOGESTREL
     Indication: CONTRACEPTION
     Dosage: 68 MG, UPPER RIGHT ARM
     Route: 059
     Dates: start: 20161222, end: 20170118
  3. NEXPLANON [Suspect]
     Active Substance: ETONOGESTREL
     Dosage: 68 MG, UNK
     Dates: start: 20161213, end: 20161222

REACTIONS (7)
  - Device difficult to use [Recovered/Resolved]
  - Vaginal haemorrhage [Unknown]
  - Depression [Unknown]
  - Mood swings [Unknown]
  - Device expulsion [Recovered/Resolved]
  - Device deployment issue [Recovered/Resolved]
  - Decreased appetite [Unknown]

NARRATIVE: CASE EVENT DATE: 20161213
